FAERS Safety Report 17849097 (Version 2)
Quarter: 2020Q2

REPORT INFORMATION
  Report Type: Spontaneous
  Country: US (occurrence: US)
  Receive Date: 20200602
  Receipt Date: 20200603
  Transmission Date: 20200714
  Serious: No
  Sender: FDA-Public Use
  Company Number: NVSC2020US150929

PATIENT
  Sex: Male

DRUGS (2)
  1. TAFINLAR [Suspect]
     Active Substance: DABRAFENIB MESYLATE
     Indication: METASTASIS
     Dosage: 150 MG
     Route: 048
     Dates: start: 20200515
  2. MEKINIST [Suspect]
     Active Substance: TRAMETINIB DIMETHYL SULFOXIDE
     Indication: METASTASIS
     Dosage: 2 MG, QD
     Route: 048
     Dates: start: 20200515

REACTIONS (5)
  - Dizziness [Unknown]
  - Nausea [Unknown]
  - Fall [Unknown]
  - Asthenia [Unknown]
  - Product use in unapproved indication [Unknown]
